FAERS Safety Report 18652151 (Version 1)
Quarter: 2020Q4

REPORT INFORMATION
  Report Type: Spontaneous
  Country: US (occurrence: US)
  Receive Date: 20201223
  Receipt Date: 20201223
  Transmission Date: 20210114
  Serious: Yes (Hospitalization)
  Sender: FDA-Public Use
  Company Number: US-STRIDES ARCOLAB LIMITED-2020SP014272

PATIENT
  Age: 34 Year
  Sex: Female

DRUGS (5)
  1. MYCOPHENOLATE MOFETIL. [Suspect]
     Active Substance: MYCOPHENOLATE MOFETIL
     Indication: RENAL TRANSPLANT
     Dosage: UNK
     Route: 065
  2. TACROLIMUS. [Suspect]
     Active Substance: TACROLIMUS
     Indication: RENAL TRANSPLANT
     Dosage: UNK
     Route: 065
  3. PREDNISOLONE. [Suspect]
     Active Substance: PREDNISOLONE
     Indication: RENAL TRANSPLANT
     Dosage: UNK
     Route: 065
  4. VALGANCICLOVIR. [Suspect]
     Active Substance: VALGANCICLOVIR
     Indication: RENAL TRANSPLANT
     Dosage: UNK
     Route: 065
  5. COTRIMOXAZOLE [Suspect]
     Active Substance: SULFAMETHOXAZOLE\TRIMETHOPRIM
     Indication: RENAL TRANSPLANT
     Dosage: UNK
     Route: 065

REACTIONS (8)
  - Gaze palsy [Not Recovered/Not Resolved]
  - Pleocytosis [Unknown]
  - Lethargy [Unknown]
  - Encephalitis viral [Not Recovered/Not Resolved]
  - Mental status changes [Not Recovered/Not Resolved]
  - Depressed level of consciousness [Not Recovered/Not Resolved]
  - Respiratory failure [Unknown]
  - Hyporeflexia [Not Recovered/Not Resolved]
